FAERS Safety Report 7588442-7 (Version None)
Quarter: 2011Q3

REPORT INFORMATION
  Report Type: 
  Country: None (occurrence: None)
  Receive Date: 20110705
  Receipt Date: 20110606
  Transmission Date: 20111222
  Serious: Yes (Hospitalization, Other)
  Sender: FDA-Public Use
  Company Number: US-BAYER-2011-030918

PATIENT
  Sex: Female
  Weight: 56.236 kg

DRUGS (7)
  1. YASMIN [Suspect]
     Indication: MENORRHAGIA
     Dosage: UNK
     Dates: start: 20040312, end: 20050801
  2. YASMIN [Suspect]
     Indication: MENSTRUAL CYCLE MANAGEMENT
  3. WELLBUTRIN [Concomitant]
     Dosage: UNK
     Dates: start: 20041101
  4. DICYCLOMINE [Concomitant]
  5. ASCORBIC ACID [Concomitant]
  6. PHENERGAN HCL [Concomitant]
  7. NEXIUM [Concomitant]

REACTIONS (14)
  - EMOTIONAL DISTRESS [None]
  - ABDOMINAL PAIN UPPER [None]
  - NAUSEA [None]
  - NERVOUSNESS [None]
  - DEPRESSION [None]
  - ANXIETY [None]
  - GALLBLADDER NON-FUNCTIONING [None]
  - INSOMNIA [None]
  - ABDOMINAL ADHESIONS [None]
  - VOMITING [None]
  - MENTAL DISORDER [None]
  - UNEVALUABLE EVENT [None]
  - BILIARY DYSKINESIA [None]
  - ABDOMINAL DISCOMFORT [None]
